FAERS Safety Report 7988286-8 (Version None)
Quarter: 2011Q4

REPORT INFORMATION
  Report Type: 
  Country: None (occurrence: None)
  Receive Date: 20111216
  Receipt Date: 20111208
  Transmission Date: 20120403
  Serious: Yes (Other)
  Sender: FDA-Public Use
  Company Number: US-PERRIGO-11US010803

PATIENT
  Age: 7 Year
  Sex: Male
  Weight: 22.676 kg

DRUGS (1)
  1. CHILDREN'S IBUPROFEN [Suspect]
     Indication: EAR PAIN
     Dosage: 7.5 ML, SINGLE
     Route: 048
     Dates: start: 20111207, end: 20111207

REACTIONS (6)
  - COUGH [None]
  - URTICARIA [None]
  - DYSPNOEA [None]
  - SWOLLEN TONGUE [None]
  - RASH [None]
  - EYE SWELLING [None]
